FAERS Safety Report 7671799-6 (Version None)
Quarter: 2011Q3

REPORT INFORMATION
  Report Type: 
  Country: None (occurrence: None)
  Receive Date: 20110725
  Receipt Date: 20110721
  Transmission Date: 20111222
  Serious: Yes (Death, Hospitalization, Other)
  Sender: FDA-Public Use
  Company Number: 200813718

PATIENT
  Sex: Female
  Weight: 74.1 kg

DRUGS (16)
  1. PRIVIGEN [Suspect]
     Indication: DEMYELINATING POLYNEUROPATHY
     Dosage: 1ST INFUSION 40G (400 ML) OVER 3 HRS AND 40 MIN, 2ND INFUSION 37G (370 ML) OVER 2 HRS  AND 40 MIN IN
     Route: 042
     Dates: start: 20080607, end: 20080608
  2. PRIVIGEN [Suspect]
     Indication: CHRONIC GRAFT VERSUS HOST DISEASE
     Dosage: 1ST INFUSION 40G (400 ML) OVER 3 HRS AND 40 MIN, 2ND INFUSION 37G (370 ML) OVER 2 HRS  AND 40 MIN IN
     Route: 042
     Dates: start: 20080607, end: 20080608
  3. EVISTA [Concomitant]
  4. ATOVAQUONE [Concomitant]
  5. ASPIRIN [Concomitant]
  6. LEVOTHYROXINE SODIUM [Concomitant]
  7. ATIVAN [Concomitant]
  8. TACROLIMUS [Concomitant]
  9. PROTONIX [Concomitant]
  10. TOPROL-XL [Concomitant]
  11. DILTIAZEM [Concomitant]
  12. PREDNISONE [Concomitant]
  13. NYSTATIN [Concomitant]
  14. ACYCLOVIR [Concomitant]
  15. AMIODARONE HCL [Concomitant]
  16. LOVASTATIN [Concomitant]

REACTIONS (17)
  - NAUSEA [None]
  - ATRIAL FIBRILLATION [None]
  - RENAL FAILURE ACUTE [None]
  - HAEMODIALYSIS [None]
  - CHRONIC GRAFT VERSUS HOST DISEASE [None]
  - HAEMOGLOBINURIA [None]
  - CARDIAC ARREST [None]
  - ASTHENIA [None]
  - INTRAVASCULAR HAEMOLYSIS [None]
  - HAEMOLYTIC ANAEMIA [None]
  - RESPIRATORY ARREST [None]
  - RENAL FAILURE CHRONIC [None]
  - PYREXIA [None]
  - DYSPNOEA [None]
  - CHEST DISCOMFORT [None]
  - DIZZINESS [None]
  - CARDIOPULMONARY FAILURE [None]
